FAERS Safety Report 6802781-6 (Version None)
Quarter: 2010Q2

REPORT INFORMATION
  Report Type: 
  Country: None (occurrence: None)
  Receive Date: 20100628
  Receipt Date: 20100615
  Transmission Date: 20101027
  Serious: Yes (Hospitalization)
  Sender: FDA-Public Use
  Company Number: US-ELI_LILLY_AND_COMPANY-US201006004383

PATIENT
  Sex: Female

DRUGS (15)
  1. FORTEO [Suspect]
     Indication: OSTEOPOROSIS
     Dosage: 20 UG, DAILY (1/D)
  2. PREDNISONE [Concomitant]
  3. SYNTHROID [Concomitant]
  4. SINGULAIR [Concomitant]
  5. AMBIEN [Concomitant]
  6. ZOLOFT [Concomitant]
  7. PROTONIX [Concomitant]
  8. CLARINEX [Concomitant]
  9. ZETIA [Concomitant]
  10. WELCHOL [Concomitant]
     Dosage: 625 MG, 2/D
  11. BENICAR [Concomitant]
  12. VITAMIN D [Concomitant]
  13. FUROSEMIDE [Concomitant]
  14. GENTAMICIN [Concomitant]
  15. ALBUTEROL [Concomitant]

REACTIONS (7)
  - COUGH [None]
  - DYSARTHRIA [None]
  - FACIAL PALSY [None]
  - NASAL CONGESTION [None]
  - PNEUMONIA [None]
  - TONGUE PARALYSIS [None]
  - TRANSIENT ISCHAEMIC ATTACK [None]
